FAERS Safety Report 15773220 (Version 2)
Quarter: 2019Q1

REPORT INFORMATION
  Report Type: Report from Study
  Country: CO (occurrence: CO)
  Receive Date: 20181228
  Receipt Date: 20190207
  Transmission Date: 20190417
  Serious: Yes (Other)
  Sender: FDA-Public Use
  Company Number: PHHY2017CO160171

PATIENT
  Age: 49 Year
  Sex: Female
  Weight: 84 kg

DRUGS (2)
  1. AFINITOR [Suspect]
     Active Substance: EVEROLIMUS
     Dosage: 10 MG, QD
     Route: 048
     Dates: start: 20171008
  2. AFINITOR [Suspect]
     Active Substance: EVEROLIMUS
     Indication: BREAST CANCER
     Dosage: 10 MG, QD
     Route: 048
     Dates: start: 20170601

REACTIONS (18)
  - Rectal ulcer [Recovered/Resolved]
  - Anorectal discomfort [Recovered/Resolved]
  - Oropharyngeal plaque [Not Recovered/Not Resolved]
  - Hypertension [Unknown]
  - Oral discomfort [Unknown]
  - Weight decreased [Unknown]
  - Asthenia [Unknown]
  - Stomatitis [Recovering/Resolving]
  - Mouth ulceration [Unknown]
  - Inflammation [Unknown]
  - Hypoaesthesia oral [Unknown]
  - Diarrhoea [Unknown]
  - Pruritus [Unknown]
  - Swollen tongue [Not Recovered/Not Resolved]
  - Glossitis [Recovered/Resolved]
  - Noninfective gingivitis [Unknown]
  - Malaise [Unknown]
  - Dry skin [Recovering/Resolving]

NARRATIVE: CASE EVENT DATE: 20171012
